APPROVED DRUG PRODUCT: LEVETIRACETAM IN SODIUM CHLORIDE
Active Ingredient: LEVETIRACETAM
Strength: 250MG/50ML (5MG/ML) **Federal Register determination that product was not discontinued or withdrawn for safety or effectiveness reasons**
Dosage Form/Route: INJECTABLE;INTRAVENOUS
Application: N202543 | Product #004
Applicant: HQ SPECIALTY PHARMA CORP
Approved: Dec 14, 2020 | RLD: Yes | RS: No | Type: DISCN